FAERS Safety Report 21729581 (Version 1)
Quarter: 2022Q4

REPORT INFORMATION
  Report Type: Spontaneous
  Country: US (occurrence: US)
  Receive Date: 20221214
  Receipt Date: 20221214
  Transmission Date: 20230113
  Serious: Yes (Hospitalization, Other)
  Sender: FDA-Public Use
  Company Number: US-PFIZER INC-202201364408

PATIENT
  Age: 60 Year
  Sex: Female

DRUGS (1)
  1. XELJANZ [Suspect]
     Active Substance: TOFACITINIB CITRATE
     Indication: Rheumatoid arthritis
     Dosage: 5 MG, 2X/DAY
     Route: 048

REACTIONS (19)
  - Fall [Unknown]
  - Mental status changes [Unknown]
  - Acute respiratory failure [Unknown]
  - Respiratory distress [Unknown]
  - Pancytopenia [Recovering/Resolving]
  - Pneumonia [Unknown]
  - Neutropenia [Recovered/Resolved]
  - Febrile neutropenia [Unknown]
  - Sepsis [Unknown]
  - Odynophagia [Unknown]
  - Mouth swelling [Unknown]
  - Mouth ulceration [Unknown]
  - Thrombocytopenia [Recovering/Resolving]
  - Dysphagia [Unknown]
  - Acute kidney injury [Unknown]
  - Oropharyngeal candidiasis [Unknown]
  - Stomatitis [Unknown]
  - Mucocutaneous candidiasis [Unknown]
  - Acidosis [Unknown]

NARRATIVE: CASE EVENT DATE: 20151122
